FAERS Safety Report 7088308-5 (Version None)
Quarter: 2010Q4

REPORT INFORMATION
  Report Type: 
  Country: None (occurrence: None)
  Receive Date: 20101028
  Receipt Date: 20101018
  Transmission Date: 20110411
  Serious: Yes (Hospitalization)
  Sender: FDA-Public Use
  Company Number: 019370

PATIENT
  Sex: Female

DRUGS (9)
  1. KEPPRA [Suspect]
     Indication: CONVULSION
     Dates: start: 20100723
  2. DILANTIN [Suspect]
     Indication: CONVULSION
     Dosage: 100 MG QID
     Dates: start: 20100701
  3. OMEPRAZOLE [Concomitant]
  4. BACLOFEN [Concomitant]
  5. PROVIGIL [Concomitant]
  6. REGLAN [Concomitant]
  7. NIASPAN [Concomitant]
  8. CRESTOR [Concomitant]
  9. DIOVAN /01319601/ [Concomitant]

REACTIONS (4)
  - DECREASED APPETITE [None]
  - DRUG INTERACTION [None]
  - LETHARGY [None]
  - LOSS OF CONSCIOUSNESS [None]
